FAERS Safety Report 9315254 (Version 1)
Quarter: 2013Q2

REPORT INFORMATION
  Report Type: Spontaneous
  Country: AU (occurrence: AU)
  Receive Date: 20130529
  Receipt Date: 20130529
  Transmission Date: 20140414
  Serious: Yes (Other)
  Sender: FDA-Public Use
  Company Number: AU-BRISTOL-MYERS SQUIBB COMPANY-18706630

PATIENT
  Age: 34 Year
  Sex: Female
  Weight: 84 kg

DRUGS (6)
  1. BYETTA [Suspect]
     Indication: TYPE 2 DIABETES MELLITUS
     Route: 058
     Dates: start: 20130206, end: 20130215
  2. GLICLAZIDE [Concomitant]
  3. METFORMIN [Concomitant]
  4. MOBIC [Concomitant]
  5. PANADOL [Concomitant]
  6. TRAMADOL [Concomitant]

REACTIONS (2)
  - Upper gastrointestinal haemorrhage [Recovered/Resolved]
  - Drug intolerance [Unknown]
